FAERS Safety Report 25117595 (Version 1)
Quarter: 2025Q1

REPORT INFORMATION
  Report Type: Spontaneous
  Country: US (occurrence: US)
  Receive Date: 20250325
  Receipt Date: 20250325
  Transmission Date: 20250409
  Serious: No
  Sender: ROCHE
  Company Number: US-ROCHE-10000236078

PATIENT
  Sex: Female

DRUGS (3)
  1. XOLAIR [Suspect]
     Active Substance: OMALIZUMAB
     Indication: Chronic spontaneous urticaria
     Route: 058
     Dates: start: 20250311
  2. HYDROXYZINE [Interacting]
     Active Substance: HYDROXYZINE HYDROCHLORIDE
     Indication: Product used for unknown indication
     Route: 065
  3. METHOCARBAMOL [Interacting]
     Active Substance: METHOCARBAMOL
     Indication: Product used for unknown indication
     Route: 065

REACTIONS (6)
  - Dizziness [Recovered/Resolved]
  - Myalgia [Recovered/Resolved]
  - Flushing [Recovered/Resolved]
  - Rash [Recovered/Resolved]
  - Agitation [Recovered/Resolved]
  - Drug interaction [Unknown]

NARRATIVE: CASE EVENT DATE: 20250317
